FAERS Safety Report 7442731-5 (Version None)
Quarter: 2011Q2

REPORT INFORMATION
  Report Type: 
  Country: None (occurrence: None)
  Receive Date: 20110428
  Receipt Date: 20110414
  Transmission Date: 20111010
  Serious: Yes (Death)
  Sender: FDA-Public Use
  Company Number: ES-CELGENEUS-144-21880-11041897

PATIENT
  Age: 82 Year
  Sex: Female

DRUGS (2)
  1. REVLIMID [Suspect]
     Dosage: 25 MILLIGRAM
     Route: 048
     Dates: start: 20100801, end: 20101201
  2. DEXAMETHASONE [Concomitant]
     Dosage: 40 MILLIGRAM
     Route: 065

REACTIONS (2)
  - DIARRHOEA [None]
  - ASTHENIA [None]
